FAERS Safety Report 20838951 (Version 1)
Quarter: 2022Q2

REPORT INFORMATION
  Report Type: Spontaneous
  Country: US (occurrence: US)
  Receive Date: 20220517
  Receipt Date: 20220517
  Transmission Date: 20220721
  Serious: Yes (Hospitalization)
  Sender: FDA-Public Use
  Company Number: US-MYLANLABS-2022M1036422

PATIENT
  Age: 27 Year
  Sex: Female

DRUGS (9)
  1. SULFAMETHOXAZOLE\TRIMETHOPRIM [Suspect]
     Active Substance: SULFAMETHOXAZOLE\TRIMETHOPRIM
     Indication: Antibiotic prophylaxis
     Route: 065
  2. CIPROFLOXACIN [Suspect]
     Active Substance: CIPROFLOXACIN
     Indication: Product used for unknown indication
     Dosage: UNK
     Route: 048
  3. VANCOMYCIN [Suspect]
     Active Substance: VANCOMYCIN
     Indication: Urinary tract infection
     Dosage: UNK
     Route: 048
  4. VANCOMYCIN [Suspect]
     Active Substance: VANCOMYCIN
     Indication: Urinary tract infection
     Dosage: UNK
     Route: 054
  5. CEFTRIAXONE [Suspect]
     Active Substance: CEFTRIAXONE
     Indication: Evidence based treatment
     Dosage: UNK
     Route: 042
  6. CEFTRIAXONE [Suspect]
     Active Substance: CEFTRIAXONE
     Indication: Pyelonephritis acute
  7. CEFPODOXIME [Suspect]
     Active Substance: CEFPODOXIME
     Indication: Product used for unknown indication
     Dosage: UNK
     Route: 065
  8. PIPERACILLIN AND TAZOBACTAM [Suspect]
     Active Substance: PIPERACILLIN SODIUM\TAZOBACTAM SODIUM
     Indication: Pseudomonas infection
     Dosage: UNK
     Route: 065
  9. ERTAPENEM [Suspect]
     Active Substance: ERTAPENEM
     Indication: Urinary tract infection
     Dosage: UNK
     Route: 065

REACTIONS (5)
  - Clostridium difficile colitis [Recovered/Resolved]
  - Sepsis [Unknown]
  - Malnutrition [Unknown]
  - Pleural effusion [Unknown]
  - Sinus tachycardia [Unknown]
